FAERS Safety Report 7311380-1 (Version None)
Quarter: 2011Q1

REPORT INFORMATION
  Report Type: 
  Country: None (occurrence: None)
  Receive Date: 20110224
  Receipt Date: 20110217
  Transmission Date: 20110831
  Serious: Yes (Other)
  Sender: FDA-Public Use
  Company Number: US-PFIZER INC-2011033471

PATIENT
  Sex: Female
  Weight: 73 kg

DRUGS (27)
  1. CHANTIX [Suspect]
     Indication: SMOKING CESSATION THERAPY
     Dosage: 0.5 MG, DAILY
     Route: 048
     Dates: start: 20110129, end: 20110201
  2. LEVOTHYROXINE [Concomitant]
     Indication: HYPERTHYROIDISM
  3. CLARITIN [Concomitant]
  4. ZOLOFT [Concomitant]
     Indication: PANIC ATTACK
  5. FLOVENT [Concomitant]
     Indication: CHRONIC OBSTRUCTIVE PULMONARY DISEASE
     Dosage: 100 UG, 2X/DAY
     Route: 055
  6. FLOVENT [Concomitant]
     Indication: SEASONAL ALLERGY
     Dosage: 110 UG, UNK
  7. VITAMIN E [Concomitant]
     Dosage: 400 IU, 1X/DAY
  8. LEVOTHYROXINE [Concomitant]
     Indication: THYROID DISORDER
     Dosage: 75 UG, 1X/DAY
     Route: 048
  9. ZOLOFT [Concomitant]
     Indication: ANXIETY
     Dosage: 100 MG, 2X/DAY
  10. CLARITIN [Concomitant]
     Indication: HYPERSENSITIVITY
     Dosage: 10 MG, 1X/DAY
  11. KLOR-CON [Concomitant]
     Dosage: 20 MEQ, 1X/DAY
  12. CHANTIX [Suspect]
     Dosage: 1 MG, 2X/DAY
     Route: 048
     Dates: start: 20110201, end: 20110217
  13. VERAPAMIL [Concomitant]
     Indication: HYPERTENSION
     Dosage: 240 MG, 1X/DAY
  14. XANAX [Concomitant]
     Indication: ANXIETY
     Dosage: 0.5 MG, AS NEEDED
     Dates: end: 20101001
  15. SIMVASTATIN [Concomitant]
     Indication: BLOOD CHOLESTEROL INCREASED
     Dosage: 40 MG, 1X/DAY
  16. ZOLOFT [Concomitant]
     Indication: OBSESSIVE-COMPULSIVE DISORDER
  17. CALCIUM [Concomitant]
     Indication: OSTEOPOROSIS
     Dosage: UNK
  18. MELOXICAM [Concomitant]
     Indication: PAIN
     Dosage: 75 MG, 1X/DAY
     Route: 048
  19. VITAMIN A [Concomitant]
     Dosage: 8000 IU, 1X/DAY
  20. TYLENOL [Concomitant]
     Indication: ARTHRITIS
     Dosage: 1000 MG, 2X/DAY
     Route: 048
  21. TYLENOL [Concomitant]
  22. BACLOFEN [Concomitant]
     Indication: BACK PAIN
     Dosage: 10 MG, 2X/DAY
  23. MELOXICAM [Concomitant]
     Indication: NEURALGIA
  24. ALENDRONATE SODIUM [Concomitant]
     Indication: OSTEOPOROSIS
     Dosage: 70 MG, WEEKLY
  25. GARLIC [Concomitant]
     Dosage: 1000 MG, 1X/DAY
  26. LEVOTHYROXINE [Concomitant]
     Indication: HYPOTHYROIDISM
  27. CLARITIN [Concomitant]
     Indication: SEASONAL ALLERGY

REACTIONS (3)
  - PALPITATIONS [None]
  - CONFUSIONAL STATE [None]
  - CHEST PAIN [None]
